FAERS Safety Report 6310403-6 (Version None)
Quarter: 2009Q3

REPORT INFORMATION
  Report Type: 
  Country: None (occurrence: None)
  Receive Date: 20090814
  Receipt Date: 20090804
  Transmission Date: 20100115
  Serious: Yes (Other)
  Sender: FDA-Public Use
  Company Number: US-PFIZER INC-2009240218

PATIENT
  Age: 51 Year
  Sex: Female

DRUGS (1)
  1. XANAX [Suspect]
     Indication: CRYING
     Dosage: UNK
     Dates: start: 19830101

REACTIONS (14)
  - AMNESIA [None]
  - CONFUSIONAL STATE [None]
  - COORDINATION ABNORMAL [None]
  - CYSTITIS [None]
  - DYSARTHRIA [None]
  - DYSGRAPHIA [None]
  - FEELING ABNORMAL [None]
  - HOSTILITY [None]
  - IMPAIRED DRIVING ABILITY [None]
  - INSOMNIA [None]
  - NEPHROLITHIASIS [None]
  - PAIN [None]
  - PSYCHIATRIC SYMPTOM [None]
  - URINARY RETENTION [None]
